FAERS Safety Report 7990849-0 (Version None)
Quarter: 2011Q4

REPORT INFORMATION
  Report Type: 
  Country: None (occurrence: None)
  Receive Date: 20111219
  Receipt Date: 20111209
  Transmission Date: 20120403
  Serious: Yes (Life-Threatening, Hospitalization, Other)
  Sender: FDA-Public Use
  Company Number: US-ACTELION-A-US2011-56473

PATIENT

DRUGS (16)
  1. COZAAR [Concomitant]
  2. LEXAPRO [Concomitant]
  3. OXYCODONE HCL [Concomitant]
  4. FENTANYL [Concomitant]
  5. TRACLEER [Suspect]
     Indication: PULMONARY ARTERIAL HYPERTENSION
     Dosage: 125
     Route: 048
     Dates: start: 20101201
  6. NITROGLYCERIN [Concomitant]
  7. ZOLPIDEM [Concomitant]
  8. PROAIR HFA [Concomitant]
  9. PLAQUENIL [Concomitant]
  10. FERROUS SULFATE TAB [Concomitant]
  11. TRACLEER [Suspect]
     Dosage: 62.5
     Route: 048
     Dates: start: 20101122, end: 20101201
  12. RANITIDINE [Concomitant]
  13. CALCIUM +D [Concomitant]
  14. NEXIUM [Concomitant]
  15. DOC-Q-LACE [Concomitant]
  16. PROMETHAZINE [Concomitant]

REACTIONS (9)
  - BACK PAIN [None]
  - BLINDNESS [None]
  - LEUKOENCEPHALOPATHY [None]
  - EYE MOVEMENT DISORDER [None]
  - PERICARDIAL EFFUSION [None]
  - MYELITIS TRANSVERSE [None]
  - OPTIC NERVE INJURY [None]
  - NEUROMYELITIS OPTICA [None]
  - PERICARDIAL EXCISION [None]
